FAERS Safety Report 7107288-7 (Version None)
Quarter: 2010Q4

REPORT INFORMATION
  Report Type: 
  Country: None (occurrence: None)
  Receive Date: 20101116
  Receipt Date: 20101108
  Transmission Date: 20110411
  Serious: Yes (Death, Hospitalization)
  Sender: FDA-Public Use
  Company Number: US-GILEAD-2010-0033115

PATIENT
  Sex: Female

DRUGS (11)
  1. LETAIRIS [Suspect]
     Indication: PULMONARY ARTERIAL HYPERTENSION
     Route: 048
     Dates: start: 20100917, end: 20101101
  2. METOLAZONE [Concomitant]
  3. OXYCODONE HCL [Concomitant]
  4. XANAX [Concomitant]
  5. PREVACID [Concomitant]
  6. ZOFRAN [Concomitant]
  7. POTASSIUM CHLORIDE [Concomitant]
  8. LASIX [Concomitant]
  9. SPIRONOLACTONE [Concomitant]
  10. PREDNISONE [Concomitant]
  11. PLAQUENIL [Concomitant]

REACTIONS (4)
  - ABDOMINAL DISCOMFORT [None]
  - ENDOCARDITIS BACTERIAL [None]
  - FLUID RETENTION [None]
  - SEPSIS [None]
